FAERS Safety Report 14770242 (Version 1)
Quarter: 2018Q2

REPORT INFORMATION
  Report Type: Spontaneous
  Country: DE (occurrence: DE)
  Receive Date: 20180417
  Receipt Date: 20180417
  Transmission Date: 20180711
  Serious: Yes (Hospitalization)
  Sender: FDA-Public Use
  Company Number: DE-TEVA-2018-DE-883583

PATIENT
  Age: 48 Year
  Sex: Male
  Weight: 95 kg

DRUGS (2)
  1. CIPROFLOXACIN. [Suspect]
     Active Substance: CIPROFLOXACIN
     Route: 048
     Dates: start: 201611, end: 201611
  2. CIPROFLOXACIN. [Suspect]
     Active Substance: CIPROFLOXACIN
     Route: 048
     Dates: start: 201507, end: 201507

REACTIONS (4)
  - Arthralgia [Not Recovered/Not Resolved]
  - Tendon rupture [Not Recovered/Not Resolved]
  - Depression [Not Recovered/Not Resolved]
  - Nervous system disorder [Not Recovered/Not Resolved]

NARRATIVE: CASE EVENT DATE: 20170816
